FAERS Safety Report 15290629 (Version 1)
Quarter: 2018Q3

REPORT INFORMATION
  Report Type: Report from Study
  Country: ES (occurrence: ES)
  Receive Date: 20180817
  Receipt Date: 20180817
  Transmission Date: 20181010
  Serious: Yes (Hospitalization, Other)
  Sender: FDA-Public Use
  Company Number: ES-TEVA-2018-ES-942781

PATIENT
  Age: 86 Year
  Sex: Female

DRUGS (8)
  1. BISOPROLOL (2328A) [Concomitant]
     Active Substance: BISOPROLOL
     Indication: TACHYCARDIA
     Dosage: 5 MILLIGRAM DAILY;
     Route: 048
     Dates: start: 2018
  2. OMEPRAZOL (2141A) [Concomitant]
     Active Substance: OMEPRAZOLE
     Dosage: 20 MILLIGRAM DAILY;
     Route: 048
  3. ADIRO 100 MG COMPRIMIDOS GASTRORRESISTENTES EFG [Concomitant]
     Active Substance: ASPIRIN
     Dosage: 100 MILLIGRAM DAILY; A FOOD TABLET
     Route: 048
     Dates: start: 2018
  4. FUROSEMIDA (1615A) [Concomitant]
     Active Substance: FUROSEMIDE
     Indication: CARDIAC FAILURE
     Dosage: 40 MILLIGRAM DAILY; A TABLET FOR BREAKFAST
     Route: 048
     Dates: start: 2018, end: 20180305
  5. ATORVASTATINA (7400A) [Suspect]
     Active Substance: ATORVASTATIN
     Indication: ACUTE MYOCARDIAL INFARCTION
     Dosage: 80 MILLIGRAM DAILY;
     Route: 048
     Dates: start: 201802, end: 20180305
  6. AMIODARONA (392A) [Interacting]
     Active Substance: AMIODARONE
     Indication: VENTRICULAR TACHYCARDIA
     Dosage: 200 MILLIGRAM DAILY; A FOOD TABLET
     Route: 048
     Dates: start: 20180131, end: 20180305
  7. LEXATIN 1,5 MG CAPSULAS DURAS [Concomitant]
     Dosage: 1.5 MILLIGRAM DAILY;
     Route: 048
  8. CLOPIDOGREL [Concomitant]
     Active Substance: CLOPIDOGREL BISULFATE
     Dosage: 75 MILLIGRAM DAILY; A FOOD TABLET
     Route: 048
     Dates: start: 2018

REACTIONS (6)
  - Muscular weakness [Recovering/Resolving]
  - Drug interaction [Unknown]
  - Decreased appetite [Recovering/Resolving]
  - Rhabdomyolysis [Recovering/Resolving]
  - Asthenia [Recovering/Resolving]
  - Hepatitis toxic [Recovering/Resolving]

NARRATIVE: CASE EVENT DATE: 201802
